FAERS Safety Report 12241734 (Version 1)
Quarter: 2016Q2

REPORT INFORMATION
  Report Type: Spontaneous
  Country: GB (occurrence: GB)
  Receive Date: 20160406
  Receipt Date: 20160406
  Transmission Date: 20160815
  Serious: Yes (Hospitalization)
  Sender: FDA-Public Use
  Company Number: GB-ACTAVIS-2016-07234

PATIENT
  Age: 87 Year
  Sex: Male

DRUGS (8)
  1. MORPHINE (UNKNOWN) [Suspect]
     Active Substance: MORPHINE
     Indication: PAIN
     Dosage: 10 MG, QID (IMMEDIATE RELEASE)-AS REQUIRED
     Route: 048
     Dates: start: 20160318, end: 20160321
  2. MORPHINE (UNKNOWN) [Suspect]
     Active Substance: MORPHINE
     Indication: PAIN
     Dosage: 10 MG, BID (MODIFIED RELEASE)
     Route: 048
     Dates: start: 20160318, end: 20160321
  3. SILDENAFIL. [Concomitant]
     Active Substance: SILDENAFIL
     Indication: ERECTILE DYSFUNCTION
     Dosage: UNK, UNKNOWN
     Route: 065
  4. TAMSULOSIN (UNKNOWN) [Suspect]
     Active Substance: TAMSULOSIN
     Indication: BENIGN PROSTATIC HYPERPLASIA
     Dosage: 400 ?G, DAILY
     Route: 048
     Dates: start: 20160222
  5. WARFARIN [Concomitant]
     Active Substance: WARFARIN
     Indication: PRODUCT USED FOR UNKNOWN INDICATION
     Dosage: UNK UNK, UNKNOWN
     Route: 065
     Dates: end: 20160217
  6. ATORVASTATIN [Concomitant]
     Active Substance: ATORVASTATIN
     Indication: PRODUCT USED FOR UNKNOWN INDICATION
     Dosage: UNK, UNKNOWN
     Route: 065
  7. ASPIRIN. [Concomitant]
     Active Substance: ASPIRIN
     Indication: PRODUCT USED FOR UNKNOWN INDICATION
     Dosage: UNK, UNKNOWN
     Route: 065
  8. PERINDOPRIL [Concomitant]
     Active Substance: PERINDOPRIL
     Indication: PRODUCT USED FOR UNKNOWN INDICATION
     Dosage: UNK, UNKNOWN
     Route: 065

REACTIONS (2)
  - Circulatory collapse [Recovered/Resolved]
  - Hypotension [Recovered/Resolved]

NARRATIVE: CASE EVENT DATE: 20160321
